FAERS Safety Report 10267462 (Version 2)
Quarter: 2014Q2

REPORT INFORMATION
  Report Type: Spontaneous
  Country: DE (occurrence: DE)
  Receive Date: 20140630
  Receipt Date: 20140630
  Transmission Date: 20141212
  Serious: Yes (Other)
  Sender: FDA-Public Use
  Company Number: DE-THROMBOGENICS INC-JET-2014-382

PATIENT
  Age: 56 Year
  Sex: Female

DRUGS (1)
  1. JETREA [Suspect]
     Indication: VITREOUS ADHESIONS
     Dosage: 0.05 MG, ONE TIME DOSE
     Route: 031
     Dates: start: 20140605, end: 20140605

REACTIONS (14)
  - Subretinal fluid [Unknown]
  - Visual impairment [Recovered/Resolved]
  - Visual acuity reduced [Recovered/Resolved]
  - Photopsia [Recovered/Resolved]
  - Photophobia [Recovered/Resolved with Sequelae]
  - Vision blurred [Recovered/Resolved]
  - Eye pain [Recovered/Resolved]
  - Vitreous floaters [Unknown]
  - Headache [Unknown]
  - Photalgia [Not Recovered/Not Resolved]
  - Visual field defect [Unknown]
  - Visual impairment [Recovered/Resolved with Sequelae]
  - Visual impairment [Recovered/Resolved with Sequelae]
  - Visual impairment [Recovered/Resolved with Sequelae]
